FAERS Safety Report 7306904-4 (Version None)
Quarter: 2011Q1

REPORT INFORMATION
  Report Type: 
  Country: None (occurrence: None)
  Receive Date: 20110223
  Receipt Date: 20110218
  Transmission Date: 20110831
  Serious: No
  Sender: FDA-Public Use
  Company Number: US-TEVA-264321USA

PATIENT
  Age: 21 Year
  Sex: Female
  Weight: 88.076 kg

DRUGS (1)
  1. PLAN B ONE-STEP [Suspect]
     Indication: POST COITAL CONTRACEPTION
     Route: 048
     Dates: start: 20110101, end: 20110101

REACTIONS (4)
  - DRUG INEFFECTIVE [None]
  - MENSTRUATION IRREGULAR [None]
  - PELVIC PAIN [None]
  - PREGNANCY AFTER POST COITAL CONTRACEPTION [None]
